FAERS Safety Report 8632802 (Version 2)
Quarter: 2013Q1

REPORT INFORMATION
  Report Type: Spontaneous
  Country: AU (occurrence: AU)
  Receive Date: 20120625
  Receipt Date: 20130228
  Transmission Date: 20140127
  Serious: Yes (Other)
  Sender: FDA-Public Use
  Company Number: AU-ROCHE-1043200

PATIENT
  Age: 81 Year
  Sex: Female

DRUGS (4)
  1. LUCENTIS [Suspect]
     Indication: AGE-RELATED MACULAR DEGENERATION
     Route: 050
     Dates: start: 201110
  2. ASPIRIN [Concomitant]
  3. FISH OIL [Concomitant]
  4. AVASTIN [Concomitant]

REACTIONS (8)
  - Retinal detachment [Not Recovered/Not Resolved]
  - Conjunctival haemorrhage [Recovered/Resolved]
  - Macular degeneration [Unknown]
  - Visual impairment [Not Recovered/Not Resolved]
  - Eye pain [Recovered/Resolved]
  - Ocular hyperaemia [Recovered/Resolved]
  - Drug ineffective [Unknown]
  - Abdominal discomfort [Unknown]
